FAERS Safety Report 12113578 (Version 1)
Quarter: 2016Q1

REPORT INFORMATION
  Report Type: Spontaneous
  Country: GB (occurrence: GB)
  Receive Date: 20160225
  Receipt Date: 20160225
  Transmission Date: 20160526
  Serious: Yes (Other)
  Sender: FDA-Public Use
  Company Number: GB-ACCORD-037987

PATIENT
  Age: 54 Year
  Sex: Female
  Weight: 48 kg

DRUGS (10)
  1. ESCITALOPRAM [Suspect]
     Active Substance: ESCITALOPRAM OXALATE
     Indication: PRODUCT USED FOR UNKNOWN INDICATION
     Dates: start: 20160204
  2. LOPERAMIDE [Concomitant]
     Active Substance: LOPERAMIDE
     Dosage: USE AS DIRECTED
     Dates: start: 20150107
  3. METRONIDAZOLE. [Concomitant]
     Active Substance: METRONIDAZOLE
     Dates: start: 20151203, end: 20151210
  4. ORAMORPH [Concomitant]
     Active Substance: MORPHINE SULFATE
     Dosage: 5MLS TO BE TAKEN FOUR TIMES DAILY WHEN REQUIRED
     Dates: start: 20151203, end: 20151204
  5. CIPRALEX [Concomitant]
     Active Substance: ESCITALOPRAM OXALATE
     Dosage: USE AS DIRECTED
     Dates: start: 20160126
  6. DIHYDROCODEINE [Concomitant]
     Active Substance: DIHYDROCODEINE
     Dosage: TAKE ONE EVERY 4-6 HRS
     Dates: start: 20151217, end: 20151227
  7. PARACETAMOL [Concomitant]
     Active Substance: ACETAMINOPHEN
     Dates: start: 20151217, end: 20151227
  8. LANSOPRAZOLE. [Concomitant]
     Active Substance: LANSOPRAZOLE
     Dates: start: 20150813
  9. ZOPICLONE [Concomitant]
     Active Substance: ZOPICLONE
     Dosage: AT NIGHT
     Dates: start: 20151217, end: 20160114
  10. DIAZEPAM. [Concomitant]
     Active Substance: DIAZEPAM
     Dosage: TAKE ONE AS NEEDED
     Dates: start: 20151217, end: 20151218

REACTIONS (3)
  - Product substitution issue [Unknown]
  - Drug ineffective [Unknown]
  - Nausea [Recovered/Resolved]

NARRATIVE: CASE EVENT DATE: 20160204
